FAERS Safety Report 5873227-X (Version None)
Quarter: 2008Q3

REPORT INFORMATION
  Report Type: 
  Country: None (occurrence: None)
  Receive Date: 20080908
  Receipt Date: 20080902
  Transmission Date: 20090109
  Serious: Yes (Hospitalization)
  Sender: FDA-Public Use
  Company Number: JP-BAYER-200810266BYL

PATIENT
  Age: 77 Year
  Sex: Female

DRUGS (3)
  1. CIPROXAN-I.V. [Suspect]
     Indication: PNEUMONIA
     Dosage: TOTAL DAILY DOSE: 600 MG  UNIT DOSE: 300 MG
     Route: 041
     Dates: start: 20080204, end: 20080212
  2. SOLITA-T 3G [Concomitant]
     Dosage: TOTAL DAILY DOSE: 1000 ML
     Route: 042
     Dates: start: 20080204, end: 20080212
  3. LACTEC [Concomitant]
     Dosage: TOTAL DAILY DOSE: 500 ML
     Route: 042
     Dates: start: 20080204, end: 20080212

REACTIONS (4)
  - CYSTITIS HAEMORRHAGIC [None]
  - GENERAL PHYSICAL HEALTH DETERIORATION [None]
  - HAEMATEMESIS [None]
  - HAEMATURIA [None]
